FAERS Safety Report 9872466 (Version 1)
Quarter: 2014Q1

REPORT INFORMATION
  Report Type: Other
  Country: US (occurrence: US)
  Receive Date: 20140206
  Receipt Date: 20140206
  Transmission Date: 20141002
  Serious: No
  Sender: FDA-Public Use
  Company Number: US-ACORDA-ACO_100007_2013

PATIENT
  Age: 38 Year
  Sex: Female

DRUGS (2)
  1. AMPYRA [Suspect]
     Indication: GAIT DISTURBANCE
     Dosage: 10 MG, Q 12 HRS
     Route: 048
     Dates: start: 2012
  2. AMPYRA [Suspect]
     Indication: MULTIPLE SCLEROSIS

REACTIONS (6)
  - Muscular weakness [Recovering/Resolving]
  - Urine odour abnormal [Not Recovered/Not Resolved]
  - Pruritus [Not Recovered/Not Resolved]
  - Therapeutic response unexpected [Unknown]
  - Tremor [Not Recovered/Not Resolved]
  - Drug dose omission [Unknown]
